FAERS Safety Report 10829152 (Version 1)
Quarter: 2015Q1

REPORT INFORMATION
  Report Type: Spontaneous
  Country: FR (occurrence: FR)
  Receive Date: 20150219
  Receipt Date: 20150219
  Transmission Date: 20150721
  Serious: Yes (Hospitalization)
  Sender: FDA-Public Use
  Company Number: FR-AMGEN-FRASP2015015264

PATIENT
  Age: 57 Year
  Sex: Male

DRUGS (5)
  1. IRINOTECAN [Suspect]
     Active Substance: IRINOTECAN
     Indication: COLON CANCER METASTATIC
     Dosage: DAILY DOSE: 22.8571 MG (320 MG, 1 IN 2 WEEKS)
     Route: 042
     Dates: start: 20140909, end: 20141104
  2. DOXYCYCLINE. [Suspect]
     Active Substance: DOXYCYCLINE
     Indication: PRODUCT USED FOR UNKNOWN INDICATION
     Dosage: DAILY DOSE: 200 MG (200 MG, 1 IN 1 DAY)
     Route: 048
     Dates: start: 20140909, end: 20141104
  3. VECTIBIX [Suspect]
     Active Substance: PANITUMUMAB
     Indication: COLON CANCER METASTATIC
     Dosage: 15.6429 MG (219 MG, 1 IN 2 WEEKS)
     Route: 042
     Dates: start: 20140909, end: 20141104
  4. FU [Suspect]
     Active Substance: FLUOROURACIL
     Indication: COLON CANCER METASTATIC
     Dosage: DAILY DOSE: 189.2857MG (2650 MG, 1 IN 2 WEEKS)
     Route: 042
     Dates: start: 20140909, end: 20141104
  5. LEVOFOLINATE CALCIUM [Suspect]
     Active Substance: LEUCOVORIN CALCIUM
     Indication: COLON CANCER METASTATIC
     Dosage: DAILY DOSE: 26.4286MG (370 MG, 1 IN 2 WEEKS)
     Route: 042
     Dates: start: 20140909, end: 20141104

REACTIONS (2)
  - Rash vesicular [Recovered/Resolved]
  - Pyrexia [Recovered/Resolved]

NARRATIVE: CASE EVENT DATE: 20141109
